FAERS Safety Report 19660723 (Version 1)
Quarter: 2021Q3

REPORT INFORMATION
  Report Type: Spontaneous
  Country: US (occurrence: US)
  Receive Date: 20210805
  Receipt Date: 20210805
  Transmission Date: 20211014
  Serious: Yes (Hospitalization)
  Sender: FDA-Public Use
  Company Number: None

PATIENT
  Sex: Female
  Weight: 122.8 kg

DRUGS (1)
  1. TAXOL [Suspect]
     Active Substance: PACLITAXEL

REACTIONS (12)
  - Dizziness [None]
  - Gastrointestinal haemorrhage [None]
  - Diarrhoea [None]
  - Deep vein thrombosis [None]
  - Epistaxis [None]
  - Haemorrhoidal haemorrhage [None]
  - Dyspnoea [None]
  - Fall [None]
  - Heavy menstrual bleeding [None]
  - Blood loss anaemia [None]
  - Pulmonary embolism [None]
  - Head injury [None]

NARRATIVE: CASE EVENT DATE: 20210713
